FAERS Safety Report 13507608 (Version 1)
Quarter: 2017Q2

REPORT INFORMATION
  Report Type: Spontaneous
  Country: US (occurrence: US)
  Receive Date: 20170502
  Receipt Date: 20170502
  Transmission Date: 20170830
  Serious: No
  Sender: FDA-Public Use
  Company Number: None

PATIENT
  Sex: Female

DRUGS (1)
  1. SIMPONI [Suspect]
     Active Substance: GOLIMUMAB
     Indication: AUTOIMMUNE LYMPHOPROLIFERATIVE SYNDROME
     Route: 058
     Dates: start: 20170117, end: 20170501

REACTIONS (1)
  - Amenorrhoea [None]
